FAERS Safety Report 9922874 (Version 5)
Quarter: 2014Q2

REPORT INFORMATION
  Report Type: Spontaneous
  Country: JP (occurrence: JP)
  Receive Date: 20140225
  Receipt Date: 20140515
  Transmission Date: 20141212
  Serious: Yes (Other)
  Sender: FDA-Public Use
  Company Number: JP-JNJFOC-20140203950

PATIENT
  Age: 8 Decade
  Sex: Female

DRUGS (26)
  1. SOVRIAD [Suspect]
     Indication: CHRONIC HEPATITIS C
     Route: 048
     Dates: start: 20140128
  2. REBETOL [Concomitant]
     Indication: CHRONIC HEPATITIS C
     Route: 048
     Dates: start: 20140128
  3. PEGINTRON [Concomitant]
     Indication: CHRONIC HEPATITIS C
     Dosage: 0.5ML
     Route: 058
     Dates: start: 20140128
  4. ALOGLIPTIN BENZOATE [Concomitant]
     Route: 048
  5. PARIET [Concomitant]
     Route: 048
  6. PROMAC (POLAPREZINC) [Concomitant]
     Route: 048
  7. URSO [Concomitant]
     Route: 048
  8. DEPAS [Concomitant]
     Route: 048
  9. LASIX [Concomitant]
     Route: 048
  10. ALDACTONE A [Concomitant]
     Route: 048
  11. TAURINE [Concomitant]
     Route: 048
  12. LYRICA [Concomitant]
     Route: 048
  13. BRONUCK [Concomitant]
     Route: 047
     Dates: start: 20140124, end: 20140124
  14. SELBEX [Concomitant]
     Route: 048
     Dates: start: 20140202
  15. SELBEX [Concomitant]
     Route: 048
     Dates: start: 20140128, end: 20140131
  16. SELBEX [Concomitant]
     Route: 048
     Dates: start: 20140201, end: 20140201
  17. VOLTAREN [Concomitant]
     Route: 062
  18. LOCHOL [Concomitant]
     Route: 048
     Dates: start: 20140202
  19. LOCHOL [Concomitant]
     Route: 048
     Dates: start: 20140128, end: 20140131
  20. LOCHOL [Concomitant]
     Route: 048
     Dates: start: 20140201, end: 20140201
  21. ONEALFA [Concomitant]
     Route: 048
     Dates: start: 20140201, end: 20140201
  22. ONEALFA [Concomitant]
     Route: 048
     Dates: start: 20140202
  23. ONEALFA [Concomitant]
     Route: 048
     Dates: start: 20140128, end: 20140131
  24. SALOBEL [Concomitant]
     Route: 048
     Dates: start: 20140204, end: 20140205
  25. SALOBEL [Concomitant]
     Route: 048
     Dates: start: 20140206
  26. SALOBEL [Concomitant]
     Route: 048
     Dates: start: 20140201, end: 20140203

REACTIONS (1)
  - Blood uric acid increased [Not Recovered/Not Resolved]
